FAERS Safety Report 22206500 (Version 18)
Quarter: 2023Q4

REPORT INFORMATION
  Report Type: Report from Study
  Country: CN (occurrence: None)
  Receive Date: 20230413
  Receipt Date: 20231130
  Transmission Date: 20240110
  Serious: Yes (Hospitalization)
  Sender: FDA-Public Use
  Company Number: CN-ROCHE-3277853

PATIENT
  Age: 62 Year
  Sex: Male
  Weight: 65.2 kg

DRUGS (62)
  1. MOSUNETUZUMAB [Suspect]
     Active Substance: MOSUNETUZUMAB
     Indication: Follicular lymphoma
     Dosage: ON 29-SEP-2022 9:45 AM, HE RECEIVED MOST RECENT DOSE OF STUDY DRUG PRIOR TO AE.
     Route: 042
     Dates: start: 20220908
  2. MOSUNETUZUMAB [Suspect]
     Active Substance: MOSUNETUZUMAB
     Dosage: AT 9:45 AM TO 1:48 PM, HE RECEIVED HIS MOST RECENT DOSE MOSUNETUZUMAB PRIOR TO AE.
     Route: 042
     Dates: start: 20220929
  3. SODIUM BICARBONATE [Concomitant]
     Active Substance: SODIUM BICARBONATE
     Indication: Premedication
     Route: 048
     Dates: start: 20220907
  4. SODIUM BICARBONATE [Concomitant]
     Active Substance: SODIUM BICARBONATE
     Route: 048
     Dates: start: 20230316, end: 20230329
  5. RHUBARB AND SODIUM BICARBONATE [Concomitant]
     Indication: Cough
     Route: 048
     Dates: start: 20230109, end: 20230110
  6. PROMETHAZINE HYDROCHLORIDE [Concomitant]
     Active Substance: PROMETHAZINE HYDROCHLORIDE
     Indication: Cough
     Route: 048
     Dates: start: 20230109, end: 20230110
  7. ALBUTEROL SULFATE [Concomitant]
     Active Substance: ALBUTEROL SULFATE
     Indication: Cough
     Route: 048
     Dates: start: 20230109, end: 20230110
  8. AMINOPHYLLINE\CHLORPHENIRAMINE MALEATE\METHOXYPHENAMINE HYDROCHLORIDE\ [Concomitant]
     Active Substance: AMINOPHYLLINE\CHLORPHENIRAMINE MALEATE\METHOXYPHENAMINE HYDROCHLORIDE\NOSCAPINE
     Indication: Pyrexia
     Dosage: 2 CAPSULE
     Route: 048
     Dates: start: 20230224, end: 20230302
  9. DEXAMETHASONE [Concomitant]
     Active Substance: DEXAMETHASONE
     Route: 042
     Dates: start: 20230224, end: 20230225
  10. DEXAMETHASONE [Concomitant]
     Active Substance: DEXAMETHASONE
     Route: 042
     Dates: start: 20230228, end: 20230228
  11. DICLOFENAC SODIUM [Concomitant]
     Active Substance: DICLOFENAC\DICLOFENAC SODIUM
     Route: 054
     Dates: start: 20230226, end: 20230226
  12. HUMAN IMMUNOGLOBULIN G [Concomitant]
     Active Substance: HUMAN IMMUNOGLOBULIN G
     Route: 042
     Dates: start: 20230224, end: 20230226
  13. HUMAN IMMUNOGLOBULIN G [Concomitant]
     Active Substance: HUMAN IMMUNOGLOBULIN G
     Route: 042
     Dates: start: 20230321, end: 20230321
  14. MOXIFLOXACIN HYDROCHLORIDE [Concomitant]
     Active Substance: MOXIFLOXACIN HYDROCHLORIDE\MOXIFLOXACIN HYDROCHLORIDE MONOHYDRATE
     Route: 042
     Dates: start: 20230316, end: 20230320
  15. SULFAMETHOXAZOLE [Concomitant]
     Active Substance: SULFAMETHOXAZOLE
     Route: 048
     Dates: start: 20230321, end: 20230329
  16. VORICONAZOLE [Concomitant]
     Active Substance: VORICONAZOLE
     Route: 042
     Dates: start: 20230316, end: 20230317
  17. ACYCLOVIR [Concomitant]
     Active Substance: ACYCLOVIR
     Route: 042
     Dates: start: 20230322, end: 20230329
  18. TERBUTALINE [Concomitant]
     Active Substance: TERBUTALINE
     Route: 055
     Dates: start: 20230316, end: 20230324
  19. METHYLPREDNISOLONE SODIUM SUCCINATE [Concomitant]
     Active Substance: METHYLPREDNISOLONE SODIUM SUCCINATE
     Route: 042
     Dates: start: 20230321, end: 20230324
  20. METHYLPREDNISOLONE SODIUM SUCCINATE [Concomitant]
     Active Substance: METHYLPREDNISOLONE SODIUM SUCCINATE
     Route: 042
     Dates: start: 20230324, end: 20230326
  21. METHYLPREDNISOLONE SODIUM SUCCINATE [Concomitant]
     Active Substance: METHYLPREDNISOLONE SODIUM SUCCINATE
     Route: 042
     Dates: start: 20230327, end: 20230328
  22. RITONAVIR [Concomitant]
     Active Substance: RITONAVIR
     Route: 048
     Dates: start: 20230321, end: 20230329
  23. INDOMETHACIN [Concomitant]
     Active Substance: INDOMETHACIN
     Route: 045
     Dates: start: 20230318, end: 20230318
  24. INDOMETHACIN [Concomitant]
     Active Substance: INDOMETHACIN
     Route: 054
     Dates: start: 20230318, end: 20230318
  25. POTASSIUM CHLORIDE [Concomitant]
     Active Substance: POTASSIUM CHLORIDE
     Route: 042
     Dates: start: 20230319, end: 20230319
  26. POTASSIUM CHLORIDE [Concomitant]
     Active Substance: POTASSIUM CHLORIDE
     Route: 048
     Dates: start: 20230319, end: 20230329
  27. CARBAZOCHROME SODIUM SULFONATE AND SODIUM CHLORIDE [Concomitant]
     Route: 042
     Dates: start: 20230321, end: 20230321
  28. ENOXAPARIN SODIUM [Concomitant]
     Active Substance: ENOXAPARIN SODIUM
     Route: 058
     Dates: start: 20230317, end: 20230329
  29. REBAPAT [Concomitant]
     Route: 048
     Dates: start: 20230124, end: 20230130
  30. ESOMEPRAZOLE SODIUM [Concomitant]
     Active Substance: ESOMEPRAZOLE SODIUM
     Route: 042
     Dates: start: 20230321, end: 20230329
  31. CALCIUM GLUCONATE [Concomitant]
     Active Substance: CALCIUM GLUCONATE
     Route: 042
     Dates: start: 20230319, end: 20230326
  32. NIRMATRELVIR\RITONAVIR [Concomitant]
     Active Substance: NIRMATRELVIR\RITONAVIR
     Dosage: NIRMATRELVIR
     Route: 048
     Dates: start: 20230321, end: 20230329
  33. MICAFEN SODIUM [Concomitant]
     Indication: Pyrexia
     Route: 054
     Dates: start: 20230318, end: 20230318
  34. LACTULOSE [Concomitant]
     Active Substance: LACTULOSE
     Route: 048
     Dates: start: 20230318, end: 20230318
  35. INDOMETHACIN [Concomitant]
     Active Substance: INDOMETHACIN
     Route: 054
     Dates: start: 20230318, end: 20230321
  36. INDOMETHACIN [Concomitant]
     Active Substance: INDOMETHACIN
     Route: 054
     Dates: start: 20230320, end: 20230321
  37. INDOMETHACIN [Concomitant]
     Active Substance: INDOMETHACIN
     Route: 054
     Dates: start: 20230318, end: 20230321
  38. METFORMIN [Concomitant]
     Active Substance: METFORMIN HYDROCHLORIDE
     Indication: Hypoglycaemia
     Dates: start: 20230325, end: 20230325
  39. INSULIN GLARGINE [Concomitant]
     Active Substance: INSULIN GLARGINE
     Indication: Hypoglycaemia
     Route: 058
     Dates: start: 20230329, end: 20230329
  40. INSULIN GLARGINE [Concomitant]
     Active Substance: INSULIN GLARGINE
     Route: 058
     Dates: start: 20230327, end: 20230328
  41. INSULIN GLARGINE [Concomitant]
     Active Substance: INSULIN GLARGINE
     Route: 058
     Dates: start: 20230324, end: 20230326
  42. INSULIN GLARGINE [Concomitant]
     Active Substance: INSULIN GLARGINE
     Route: 058
     Dates: start: 20230327, end: 20230327
  43. DEXAMETHASONE SODIUM PHOSPHATE [Concomitant]
     Active Substance: DEXAMETHASONE PHOSPHATE\DEXAMETHASONE SODIUM PHOSPHATE
     Route: 042
     Dates: start: 20230123, end: 20230128
  44. HEPARIN SODIUM [Concomitant]
     Active Substance: HEPARIN SODIUM
     Dosage: 12500 U
     Route: 042
     Dates: start: 20230220, end: 20230220
  45. PREDNISONE ACETATE [Concomitant]
     Active Substance: PREDNISONE ACETATE
     Route: 048
     Dates: start: 20230130, end: 20230203
  46. AMOXICILLIN\CLAVULANATE POTASSIUM [Concomitant]
     Active Substance: AMOXICILLIN\CLAVULANATE POTASSIUM
     Route: 048
     Dates: start: 20230130, end: 20230203
  47. LEVOFLOXACIN HYDROCHLORIDE [Concomitant]
     Active Substance: LEVOFLOXACIN HYDROCHLORIDE
     Route: 042
     Dates: start: 20230320, end: 20230329
  48. COMPOUND LIQUORICE [Concomitant]
     Route: 048
     Dates: start: 20230315, end: 20230315
  49. INSULIN HUMAN [Concomitant]
     Active Substance: INSULIN HUMAN
     Route: 058
     Dates: start: 20230325, end: 20230325
  50. INSULIN HUMAN [Concomitant]
     Active Substance: INSULIN HUMAN
     Route: 058
     Dates: start: 20230328, end: 20230328
  51. INSULIN HUMAN [Concomitant]
     Active Substance: INSULIN HUMAN
     Route: 058
     Dates: start: 20230327, end: 20230327
  52. ACETYLCYSTEINE [Concomitant]
     Active Substance: ACETYLCYSTEINE
     Route: 048
     Dates: start: 20230322, end: 20230322
  53. DIPHENHYDRAMINE HYDROCHLORIDE [Concomitant]
     Active Substance: DIPHENHYDRAMINE HYDROCHLORIDE
     Route: 030
     Dates: start: 20230322, end: 20230322
  54. SODIUM CHLORIDE [Concomitant]
     Active Substance: SODIUM CHLORIDE
     Route: 042
     Dates: start: 20230326, end: 20230326
  55. LIDOCAINE HYDROCHLORIDE [Concomitant]
     Active Substance: DEXTROSE MONOHYDRATE\EPINEPHRINE\EPINEPHRINE BITARTRATE\LIDOCAINE\LIDOCAINE HYDROCHLORIDE\LIDOCAINE
     Route: 061
     Dates: start: 20230314, end: 20230314
  56. LIDOCAINE HYDROCHLORIDE [Concomitant]
     Active Substance: DEXTROSE MONOHYDRATE\EPINEPHRINE\EPINEPHRINE BITARTRATE\LIDOCAINE\LIDOCAINE HYDROCHLORIDE\LIDOCAINE
     Route: 061
     Dates: start: 20230315, end: 20230315
  57. ALLOPURINOL [Concomitant]
     Active Substance: ALLOPURINOL
     Route: 048
     Dates: start: 20220907
  58. AMOXICILLIN [Concomitant]
     Active Substance: AMOXICILLIN
     Route: 048
     Dates: start: 20230109, end: 20230110
  59. MOSAPRIDE CITRATE [Concomitant]
     Active Substance: MOSAPRIDE CITRATE
     Route: 048
     Dates: start: 20230124, end: 20230130
  60. MOSAPRIDE CITRATE [Concomitant]
     Active Substance: MOSAPRIDE CITRATE
     Route: 048
     Dates: start: 20230220, end: 20230302
  61. MOSAPRIDE CITRATE [Concomitant]
     Active Substance: MOSAPRIDE CITRATE
     Route: 048
     Dates: start: 20230123, end: 20230123
  62. EPINEPHRINE HYDROCHLORIDE [Concomitant]
     Active Substance: EPINEPHRINE HYDROCHLORIDE
     Indication: Bronchoscopy
     Route: 061
     Dates: start: 20230314, end: 20230314

REACTIONS (1)
  - COVID-19 pneumonia [Recovered/Resolved]

NARRATIVE: CASE EVENT DATE: 20221209
